FAERS Safety Report 25656137 (Version 2)
Quarter: 2025Q4

REPORT INFORMATION
  Report Type: Spontaneous
  Country: US (occurrence: US)
  Receive Date: 20250807
  Receipt Date: 20251103
  Transmission Date: 20260117
  Serious: Yes (Death, Hospitalization, Other)
  Sender: JOHNSON AND JOHNSON
  Company Number: US-JNJFOC-20250804314

PATIENT
  Sex: Male

DRUGS (1)
  1. TECVAYLI [Suspect]
     Active Substance: TECLISTAMAB-CQYV
     Indication: Plasma cell myeloma
     Route: 065
     Dates: start: 20250606, end: 20250625

REACTIONS (6)
  - Encephalopathy [Fatal]
  - Failure to thrive [Unknown]
  - Hepatic cirrhosis [Unknown]
  - Hepatic lesion [Unknown]
  - Plasma cell myeloma [Fatal]
  - Haematoma [Unknown]
